APPROVED DRUG PRODUCT: SULINDAC
Active Ingredient: SULINDAC
Strength: 200MG
Dosage Form/Route: TABLET;ORAL
Application: A072051 | Product #001 | TE Code: AB
Applicant: SUN PHARMACEUTICAL INDUSTRIES INC
Approved: Apr 17, 1991 | RLD: No | RS: No | Type: RX